FAERS Safety Report 6674926-2 (Version None)
Quarter: 2010Q2

REPORT INFORMATION
  Report Type: 
  Country: None (occurrence: None)
  Receive Date: 20100409
  Receipt Date: 20100406
  Transmission Date: 20101027
  Serious: Yes (Life-Threatening)
  Sender: FDA-Public Use
  Company Number: JP-JNJFOC-20100303805

PATIENT
  Age: 57 Year
  Sex: Female

DRUGS (7)
  1. RISPERDAL [Suspect]
     Indication: DRUG USE FOR UNKNOWN INDICATION
     Route: 048
  2. TEGRETOL [Concomitant]
     Route: 048
  3. LEVOMEPROMAZINE MALEATE [Concomitant]
     Route: 065
  4. ZOTEPINE [Concomitant]
     Route: 048
  5. VALPROATE SODIUM [Concomitant]
     Route: 048
  6. SEPAZON [Concomitant]
     Route: 048
  7. SILECE [Concomitant]
     Route: 065

REACTIONS (4)
  - DEPRESSED LEVEL OF CONSCIOUSNESS [None]
  - HYPOTHERMIA [None]
  - RESPIRATORY FAILURE [None]
  - SHOCK [None]
